FAERS Safety Report 16369385 (Version 3)
Quarter: 2019Q2

REPORT INFORMATION
  Report Type: Report from Study
  Country: None (occurrence: US)
  Receive Date: 20190529
  Receipt Date: 20190620
  Transmission Date: 20190711
  Serious: Yes (Other)
  Sender: FDA-Public Use
  Company Number: US-ABBVIE-19K-163-2797183-00

PATIENT
  Age: 66 Year
  Sex: Female

DRUGS (1)
  1. HUMIRA [Suspect]
     Active Substance: ADALIMUMAB
     Indication: RHEUMATOID ARTHRITIS
     Route: 058

REACTIONS (14)
  - Vascular rupture [Unknown]
  - Amnesia [Unknown]
  - Cerebral disorder [Unknown]
  - Concussion [Unknown]
  - Skull fracture [Unknown]
  - Tympanic membrane perforation [Unknown]
  - Visual impairment [Unknown]
  - Deafness [Unknown]
  - Parosmia [Unknown]
  - Balance disorder [Unknown]
  - Fall [Unknown]
  - Subdural haematoma [Unknown]
  - Anosmia [Unknown]
  - Ageusia [Unknown]

NARRATIVE: CASE EVENT DATE: 2019
